FAERS Safety Report 5813237-1 (Version None)
Quarter: 2008Q3

REPORT INFORMATION
  Report Type: 
  Country: None (occurrence: None)
  Receive Date: 20080717
  Receipt Date: 20080603
  Transmission Date: 20090109
  Serious: No
  Sender: FDA-Public Use
  Company Number: A0730771A

PATIENT
  Age: 36 Year
  Sex: Male

DRUGS (1)
  1. NICORETTE [Suspect]
     Indication: DRUG USE FOR UNKNOWN INDICATION

REACTIONS (6)
  - DYSPHAGIA [None]
  - EATING DISORDER [None]
  - OEDEMA MOUTH [None]
  - SPEECH DISORDER [None]
  - THERMAL BURN [None]
  - THROAT TIGHTNESS [None]
